FAERS Safety Report 9169286 (Version 1)
Quarter: 2013Q1

REPORT INFORMATION
  Report Type: Spontaneous
  Country: TR (occurrence: TR)
  Receive Date: 20130318
  Receipt Date: 20130318
  Transmission Date: 20140127
  Serious: Yes (Hospitalization, Disabling)
  Sender: FDA-Public Use
  Company Number: TR-TEVA-390368ISR

PATIENT
  Age: 53 Year
  Sex: Female

DRUGS (1)
  1. TAMOXIFEN [Suspect]
     Indication: BREAST CANCER
     Dosage: 20 MILLIGRAM DAILY; DAILY INTAKE WAS STATED IN THE ARTICLE.
     Route: 048
     Dates: start: 2010, end: 2013

REACTIONS (2)
  - Retinal vein occlusion [Recovered/Resolved]
  - Visual acuity reduced [Recovering/Resolving]
